FAERS Safety Report 17899494 (Version 1)
Quarter: 2020Q2

REPORT INFORMATION
  Report Type: Spontaneous
  Country: US (occurrence: US)
  Receive Date: 20200613
  Receipt Date: 20200613
  Transmission Date: 20200714
  Serious: Yes (Life-Threatening, Hospitalization, Disabling, Other)
  Sender: FDA-Public Use
  Company Number: None

PATIENT
  Age: 29 Year
  Sex: Male
  Weight: 99 kg

DRUGS (3)
  1. BUPOPRION [Concomitant]
     Active Substance: BUPROPION
  2. AMPHETAMINE/DEXTROAMPHETAMINE [Suspect]
     Active Substance: AMPHETAMINE\DEXTROAMPHETAMINE
     Dosage: ?          QUANTITY:60 DF DOSAGE FORM;?
  3. ADDERALL [Concomitant]
     Active Substance: AMPHETAMINE ASPARTATE\AMPHETAMINE SULFATE\DEXTROAMPHETAMINE SACCHARATE\DEXTROAMPHETAMINE SULFATE

REACTIONS (1)
  - Product dispensing error [None]

NARRATIVE: CASE EVENT DATE: 20200516
